FAERS Safety Report 15598508 (Version 1)
Quarter: 2018Q4

REPORT INFORMATION
  Report Type: Spontaneous
  Country: US (occurrence: US)
  Receive Date: 20181108
  Receipt Date: 20181108
  Transmission Date: 20190205
  Serious: Yes (Other)
  Sender: FDA-Public Use
  Company Number: US-SA-2018SA047219

PATIENT
  Age: 46 Year
  Sex: Female
  Weight: 71 kg

DRUGS (11)
  1. TAXOTERE [Suspect]
     Active Substance: DOCETAXEL
     Dosage: UNK, QCY
     Route: 065
     Dates: start: 20131230, end: 20131230
  2. CYTOXAN [Concomitant]
     Active Substance: CYCLOPHOSPHAMIDE
     Indication: CHEMOTHERAPY
  3. LORAZEPAM. [Concomitant]
     Active Substance: LORAZEPAM
     Dosage: UNK UNK, BID
  4. IBUPROFEN. [Concomitant]
     Active Substance: IBUPROFEN
  5. LORTAB [HYDROCODONE BITARTRATE;PARACETAMOL] [Concomitant]
     Dosage: UNK UNK, Q4H
  6. PHENERGAN [PROMETHAZINE] [Concomitant]
     Dosage: UNK UNK, Q4H
  7. MORPHINE [Concomitant]
     Active Substance: MORPHINE
  8. TAXOTERE [Suspect]
     Active Substance: DOCETAXEL
     Indication: BREAST CANCER
     Dosage: UNK UNK, QCY
     Route: 042
     Dates: start: 20131025, end: 20131025
  9. ZOFRAN [ONDANSETRON HYDROCHLORIDE] [Concomitant]
     Dosage: UNK UNK, Q6H
  10. ACETAMINOPHEN. [Concomitant]
     Active Substance: ACETAMINOPHEN
  11. NEOSAR [Concomitant]
     Active Substance: CYCLOPHOSPHAMIDE

REACTIONS (6)
  - Alopecia [Recovering/Resolving]
  - Anxiety [Unknown]
  - Emotional distress [Unknown]
  - Impaired quality of life [Unknown]
  - Psychological trauma [Unknown]
  - Pain [Unknown]

NARRATIVE: CASE EVENT DATE: 20131231
